FAERS Safety Report 6684617-X (Version None)
Quarter: 2010Q2

REPORT INFORMATION
  Report Type: 
  Country: None (occurrence: None)
  Receive Date: 20100416
  Receipt Date: 20100412
  Transmission Date: 20101027
  Serious: No
  Sender: FDA-Public Use
  Company Number: JP-BAYER-200912913BYL

PATIENT
  Age: 55 Year
  Sex: Female
  Weight: 51 kg

DRUGS (22)
  1. NEXAVAR [Suspect]
     Indication: RENAL CELL CARCINOMA
     Dosage: TOTAL DAILY DOSE: 400 MG  UNIT DOSE: 200 MG
     Route: 048
     Dates: start: 20090707
  2. NEXAVAR [Suspect]
     Dosage: TOTAL DAILY DOSE: 800 MG  UNIT DOSE: 200 MG
     Route: 048
     Dates: start: 20090106
  3. NEXAVAR [Suspect]
     Dosage: TOTAL DAILY DOSE: 800 MG  UNIT DOSE: 200 MG
     Route: 048
     Dates: start: 20090812, end: 20091230
  4. DOGMATYL [Concomitant]
     Dosage: TOTAL DAILY DOSE: 150 MG
     Route: 048
  5. FERROMIA [Concomitant]
     Dosage: TOTAL DAILY DOSE: 100 MG
     Route: 048
  6. HYPEN [Concomitant]
     Dosage: TOTAL DAILY DOSE: 400 MG
     Route: 048
  7. OXYCONTIN [Concomitant]
     Dosage: TOTAL DAILY DOSE: 10 MG
     Route: 048
  8. CODEINE SULFATE [Concomitant]
     Dosage: TOTAL DAILY DOSE: 120 MG
     Route: 048
  9. ONEALFA [Concomitant]
     Dosage: AS USED: 0.25 ?G
     Route: 048
  10. PRECIPITATED CALCIUM CARBONATE [Concomitant]
     Dosage: TOTAL DAILY DOSE: 2 G
     Route: 048
  11. OXINORM [Concomitant]
     Indication: PAIN
     Route: 048
     Dates: start: 20090130
  12. CALONAL [Concomitant]
     Dosage: TOTAL DAILY DOSE: 1200 MG
     Route: 048
     Dates: end: 20090109
  13. PURSENNID [Concomitant]
     Indication: CONSTIPATION
     Dosage: TOTAL DAILY DOSE: 12 MG  UNIT DOSE: 12 MG
     Route: 048
  14. PURSENNID [Concomitant]
     Route: 048
  15. LAXOBERON [Concomitant]
     Indication: CONSTIPATION
     Route: 048
  16. LULICON:SOLUTION [Concomitant]
     Dosage: FOOT CLAW
     Route: 061
  17. LULICON:CREAM [Concomitant]
     Dosage: SKIN OF FOOT
     Route: 061
  18. HIRUDOID [Concomitant]
     Indication: DRY SKIN
     Route: 003
  19. AMLODIN OD [Concomitant]
     Dosage: AS USED: 5 MG
     Route: 048
  20. UBRETID [Concomitant]
     Dosage: TOTAL DAILY DOSE: 10 MG  UNIT DOSE: 5 MG
     Route: 048
  21. EBRANTIL [Concomitant]
     Dosage: TOTAL DAILY DOSE: 30 MG  UNIT DOSE: 15 MG
     Route: 048
  22. ALLOID G [Concomitant]
     Dosage: TOTAL DAILY DOSE: 60 MG
     Route: 048

REACTIONS (13)
  - ABDOMINAL DISCOMFORT [None]
  - ALOPECIA [None]
  - ASTHENIA [None]
  - BLOOD AMYLASE INCREASED [None]
  - CHEST PAIN [None]
  - DECREASED APPETITE [None]
  - DYSGEUSIA [None]
  - GLOSSODYNIA [None]
  - HAEMOGLOBIN DECREASED [None]
  - HYPERTENSION [None]
  - LIPASE INCREASED [None]
  - PALMAR-PLANTAR ERYTHRODYSAESTHESIA SYNDROME [None]
  - PLATELET COUNT DECREASED [None]
